FAERS Safety Report 4552959-X (Version None)
Quarter: 2005Q1

REPORT INFORMATION
  Report Type: 
  Country: None (occurrence: None)
  Receive Date: 20050113
  Receipt Date: 20050104
  Transmission Date: 20050727
  Serious: Yes (Disabling)
  Sender: FDA-Public Use
  Company Number: TPA2004A01147

PATIENT
  Age: 53 Year
  Sex: Female

DRUGS (6)
  1. ACTOS [Suspect]
     Indication: DIABETES MELLITUS NON-INSULIN-DEPENDENT
     Dosage: SEE IMAGE
     Route: 048
     Dates: end: 20040207
  2. AMARYL [Suspect]
     Indication: DIABETES MELLITUS NON-INSULIN-DEPENDENT
     Dosage: 2 MG, 1 IN 1 D, PER ORAL
     Route: 048
  3. GLUCOPHAGE [Suspect]
     Indication: DIABETES MELLITUS NON-INSULIN-DEPENDENT
     Dosage: 850 MG, 2 IN 1 D, PER ORAL
     Route: 048
  4. ACCUPRIL [Concomitant]
  5. NORVASC [Concomitant]
  6. HYDROCHLOROTHIAZIDE [Concomitant]

REACTIONS (17)
  - BLINDNESS [None]
  - BLOOD GLUCOSE DECREASED [None]
  - CALCINOSIS [None]
  - CATARACT NUCLEAR [None]
  - DEPRESSED LEVEL OF CONSCIOUSNESS [None]
  - DIABETIC RETINOPATHY [None]
  - EYE HAEMORRHAGE [None]
  - MACULAR OEDEMA [None]
  - MACULAR SCAR [None]
  - RETINAL DISORDER [None]
  - RETINAL EXUDATES [None]
  - RETINAL HAEMORRHAGE [None]
  - RETINAL ISCHAEMIA [None]
  - RETINAL OEDEMA [None]
  - SUBRETINAL FIBROSIS [None]
  - TREMOR [None]
  - VITREOUS HAEMORRHAGE [None]
